FAERS Safety Report 7414161-3 (Version None)
Quarter: 2011Q2

REPORT INFORMATION
  Report Type: 
  Country: None (occurrence: None)
  Receive Date: 20110414
  Receipt Date: 20110411
  Transmission Date: 20111010
  Serious: Yes (Other)
  Sender: FDA-Public Use
  Company Number: VE-PFIZER INC-2011079494

PATIENT
  Age: 51 Year
  Sex: Male

DRUGS (1)
  1. LYRICA [Suspect]
     Indication: CARPAL TUNNEL SYNDROME
     Dosage: UNK
     Route: 048
     Dates: start: 20110407, end: 20110410

REACTIONS (1)
  - BLOOD PRESSURE INCREASED [None]
